FAERS Safety Report 6241558-X (Version None)
Quarter: 2009Q2

REPORT INFORMATION
  Report Type: 
  Country: None (occurrence: None)
  Receive Date: 20090623
  Receipt Date: 20041130
  Transmission Date: 20091009
  Serious: Yes (Hospitalization)
  Sender: FDA-Public Use
  Company Number: DE-ROCHE-340415

PATIENT
  Sex: Male

DRUGS (96)
  1. DACLIZUMAB [Suspect]
     Dosage: BASELINE VISIT
     Route: 042
     Dates: start: 20030414
  2. DACLIZUMAB [Suspect]
     Route: 042
     Dates: start: 20030428, end: 20030526
  3. DACLIZUMAB [Suspect]
     Dosage: WEEK- 8 VISIT
     Route: 042
     Dates: start: 20030612
  4. MYCOPHENOLATE MOFETIL [Suspect]
     Dosage: DRUG REPORTED: MYCOPHENOLAT MOFETIL
     Route: 048
     Dates: start: 20030411, end: 20030411
  5. MYCOPHENOLATE MOFETIL [Suspect]
     Route: 048
     Dates: start: 20030412
  6. MYCOPHENOLATE MOFETIL [Suspect]
     Route: 048
     Dates: start: 20030415
  7. MYCOPHENOLATE MOFETIL [Suspect]
     Route: 048
     Dates: start: 20030709
  8. CYCLOSPORINE [Suspect]
     Dosage: DRUG REPORTED: CYCLOSPORIN
     Route: 048
     Dates: start: 20030411, end: 20030411
  9. CYCLOSPORINE [Suspect]
     Route: 048
     Dates: start: 20030412
  10. CYCLOSPORINE [Suspect]
     Route: 048
     Dates: start: 20030415, end: 20030415
  11. CYCLOSPORINE [Suspect]
     Route: 048
     Dates: start: 20030415, end: 20030415
  12. CYCLOSPORINE [Suspect]
     Route: 048
     Dates: start: 20030416, end: 20030417
  13. CYCLOSPORINE [Suspect]
     Route: 048
     Dates: start: 20030417, end: 20030418
  14. CYCLOSPORINE [Suspect]
     Route: 048
     Dates: start: 20030419, end: 20030419
  15. CYCLOSPORINE [Suspect]
     Route: 048
     Dates: start: 20030419, end: 20030420
  16. CYCLOSPORINE [Suspect]
     Route: 048
     Dates: start: 20030421
  17. CYCLOSPORINE [Suspect]
     Route: 048
     Dates: start: 20030422
  18. CYCLOSPORINE [Suspect]
     Route: 048
     Dates: start: 20030507
  19. CYCLOSPORINE [Suspect]
     Route: 048
     Dates: start: 20030512
  20. CYCLOSPORINE [Suspect]
     Route: 048
     Dates: start: 20030520
  21. CYCLOSPORINE [Suspect]
     Route: 048
     Dates: start: 20030612
  22. CYCLOSPORINE [Suspect]
     Route: 048
     Dates: start: 20030627
  23. CYCLOSPORINE [Suspect]
     Route: 048
     Dates: start: 20030701
  24. CYCLOSPORINE [Suspect]
     Route: 048
     Dates: start: 20030806
  25. CYCLOSPORINE [Suspect]
     Route: 048
     Dates: start: 20030819, end: 20030819
  26. CYCLOSPORINE [Suspect]
     Route: 048
     Dates: start: 20030819
  27. CYCLOSPORINE [Suspect]
     Route: 048
     Dates: start: 20030917
  28. CYCLOSPORINE [Suspect]
     Route: 048
     Dates: start: 20031028
  29. CYCLOSPORINE [Suspect]
     Route: 048
     Dates: start: 20031028
  30. CYCLOSPORINE [Suspect]
     Route: 048
     Dates: start: 20031124
  31. CYCLOSPORINE [Suspect]
     Route: 048
     Dates: start: 20031127, end: 20031127
  32. CYCLOSPORINE [Suspect]
     Route: 048
     Dates: start: 20031127
  33. CYCLOSPORINE [Suspect]
     Route: 048
     Dates: start: 20040114
  34. CYCLOSPORINE [Suspect]
     Route: 048
     Dates: start: 20040414
  35. CYCLOSPORINE [Suspect]
     Route: 048
     Dates: start: 20040712
  36. CYCLOSPORINE [Suspect]
     Route: 048
     Dates: start: 20040716
  37. CYCLOSPORINE [Suspect]
     Route: 048
     Dates: start: 20041018
  38. CYCLOSPORINE [Suspect]
     Route: 048
     Dates: start: 20041018
  39. CYCLOSPORINE [Suspect]
     Route: 048
     Dates: start: 20041019
  40. CYCLOSPORINE [Suspect]
     Route: 048
     Dates: start: 20050112
  41. CYCLOSPORINE [Suspect]
     Route: 048
     Dates: start: 20050714
  42. CYCLOSPORINE [Suspect]
     Route: 048
     Dates: start: 20060516
  43. SIROLIMUS [Suspect]
     Route: 065
  44. TACROLIMUS [Suspect]
     Route: 065
  45. METHYLPREDNISOLONE [Suspect]
     Route: 048
     Dates: start: 20030417
  46. METHYLPREDNISOLONE [Suspect]
     Route: 048
     Dates: start: 20030506
  47. METHYLPREDNISOLONE [Suspect]
     Route: 048
     Dates: start: 20030805
  48. METHYLPREDNISOLONE [Suspect]
     Route: 048
     Dates: start: 20030917
  49. METHYLPREDNISOLONE [Suspect]
     Route: 042
     Dates: start: 20030414, end: 20030414
  50. METHYLPREDNISOLONE [Suspect]
     Route: 042
     Dates: start: 20030415, end: 20030416
  51. AMLODIPINE [Concomitant]
     Route: 048
     Dates: start: 20030417
  52. AMLODIPINE [Concomitant]
     Route: 048
     Dates: start: 20030627
  53. AMLODIPINE [Concomitant]
     Route: 048
     Dates: start: 20030917
  54. AMLODIPINE [Concomitant]
     Route: 048
     Dates: start: 20031028
  55. AMLODIPINE [Concomitant]
     Route: 048
     Dates: start: 20031124
  56. ATORVASTATIN CALCIUM [Concomitant]
     Dosage: DRUG: ATORVASTIN
     Route: 048
     Dates: start: 20030410, end: 20031125
  57. ATORVASTATIN CALCIUM [Concomitant]
     Route: 048
     Dates: start: 20040114
  58. ATORVASTATIN CALCIUM [Concomitant]
     Route: 048
     Dates: start: 20040712
  59. DOXAZOSIN MESYLATE [Concomitant]
     Route: 048
     Dates: start: 20030512
  60. DOXAZOSIN MESYLATE [Concomitant]
     Route: 048
     Dates: start: 20030627
  61. DOXAZOSIN MESYLATE [Concomitant]
     Route: 048
     Dates: start: 20030917
  62. DOXAZOSIN MESYLATE [Concomitant]
     Route: 048
     Dates: start: 20031028
  63. DOXAZOSIN MESYLATE [Concomitant]
     Route: 048
     Dates: start: 20040114
  64. DOXAZOSIN MESYLATE [Concomitant]
     Route: 048
     Dates: start: 20040712
  65. ESOMEPRAZOLE MAGNESIUM [Concomitant]
     Route: 048
     Dates: start: 20030522
  66. LOSARTAN POTASSIUM [Concomitant]
     Route: 048
     Dates: start: 20030410
  67. LOSARTAN POTASSIUM [Concomitant]
     Route: 048
     Dates: start: 20030418, end: 20030918
  68. METOPROLOL SUCCINATE [Concomitant]
     Route: 048
     Dates: start: 20030417
  69. METOPROLOL SUCCINATE [Concomitant]
     Route: 048
     Dates: start: 20030627
  70. METOPROLOL SUCCINATE [Concomitant]
     Route: 048
     Dates: start: 20030917
  71. METOPROLOL SUCCINATE [Concomitant]
     Route: 048
     Dates: start: 20031028
  72. METOPROLOL SUCCINATE [Concomitant]
     Route: 048
     Dates: start: 20031124
  73. METOPROLOL SUCCINATE [Concomitant]
     Route: 048
     Dates: start: 20040414
  74. METOPROLOL SUCCINATE [Concomitant]
     Route: 048
     Dates: start: 20040712
  75. MOXONIDINE [Concomitant]
     Dosage: DRUG: MOXONIDIN
     Route: 048
     Dates: start: 20030410, end: 20030613
  76. ACYCLOVIR [Concomitant]
     Route: 048
     Dates: start: 20030418, end: 20030521
  77. AMPHOTERICIN B [Concomitant]
     Route: 048
     Dates: start: 20030417, end: 20030513
  78. AMPHOTERICIN B [Concomitant]
     Route: 048
     Dates: start: 20030819
  79. AMPHOTERICIN B [Concomitant]
     Route: 048
     Dates: start: 20030415, end: 20030416
  80. CIPROFLOXACIN [Concomitant]
     Dosage: DRUG REPORTED: CIPROFLOXIN
     Route: 048
     Dates: start: 20030411, end: 20030512
  81. COTRIM [Concomitant]
     Route: 048
     Dates: start: 20030414, end: 20030521
  82. DIHYDRALAZINSULFAT [Concomitant]
     Route: 048
     Dates: start: 20040415, end: 20040713
  83. FUROSEMID [Concomitant]
     Route: 048
     Dates: start: 20030410
  84. FUROSEMID [Concomitant]
     Route: 048
     Dates: start: 20030417
  85. FUROSEMID [Concomitant]
     Route: 048
     Dates: start: 20030421, end: 20030512
  86. HEPARIN [Concomitant]
     Route: 042
     Dates: start: 20030415, end: 20030418
  87. LEVOFLOXACIN [Concomitant]
     Route: 048
     Dates: start: 20030722, end: 20030729
  88. LEVOFLOXACIN [Concomitant]
     Route: 048
     Dates: start: 20030814, end: 20030918
  89. LEVOFLOXACIN [Concomitant]
     Route: 048
     Dates: start: 20030923, end: 20031008
  90. RAMIPRIL [Concomitant]
     Route: 048
     Dates: start: 20030612, end: 20030627
  91. VALGANCICLOVIR HCL [Concomitant]
     Route: 048
     Dates: start: 20030709
  92. VALGANCICLOVIR HCL [Concomitant]
     Route: 048
     Dates: start: 20030814
  93. VALGANCICLOVIR HCL [Concomitant]
     Route: 048
     Dates: start: 20030901
  94. VALGANCICLOVIR HCL [Concomitant]
     Route: 048
     Dates: start: 20031008, end: 20040415
  95. VALSARTAN [Concomitant]
     Route: 048
     Dates: start: 20030917
  96. VALSARTAN [Concomitant]
     Route: 048
     Dates: start: 20041018

REACTIONS (2)
  - CYTOMEGALOVIRUS INFECTION [None]
  - GASTROENTERITIS [None]
